FAERS Safety Report 23623602 (Version 1)
Quarter: 2024Q1

REPORT INFORMATION
  Report Type: Other
  Country: JP (occurrence: JP)
  Receive Date: 20240312
  Receipt Date: 20240312
  Transmission Date: 20240410
  Serious: Yes (Hospitalization, Other)
  Sender: FDA-Public Use
  Company Number: JP-Merck Healthcare KGaA-2024011484

PATIENT
  Age: 53 Year
  Sex: Male

DRUGS (3)
  1. METGLUCO [Interacting]
     Active Substance: METFORMIN HYDROCHLORIDE
     Indication: Weight control
     Route: 048
  2. METGLUCO [Interacting]
     Active Substance: METFORMIN HYDROCHLORIDE
     Route: 048
  3. BIKTARVY [Interacting]
     Active Substance: BICTEGRAVIR SODIUM\EMTRICITABINE\TENOFOVIR ALAFENAMIDE FUMARATE
     Indication: HIV infection
     Route: 048

REACTIONS (8)
  - Drug level increased [Recovered/Resolved]
  - Lactic acidosis [Recovered/Resolved]
  - Drug interaction [Unknown]
  - Blood creatinine increased [Recovered/Resolved]
  - Blood glucose decreased [Recovered/Resolved]
  - Aspartate aminotransferase increased [Recovered/Resolved]
  - Alanine aminotransferase increased [Recovered/Resolved]
  - Off label use [Unknown]
